FAERS Safety Report 23908589 (Version 1)
Quarter: 2024Q2

REPORT INFORMATION
  Report Type: Spontaneous
  Country: US (occurrence: US)
  Receive Date: 20240528
  Receipt Date: 20240528
  Transmission Date: 20240716
  Serious: Yes (Hospitalization)
  Sender: FDA-Public Use
  Company Number: US-BAYER-2024A073804

PATIENT
  Sex: Female

DRUGS (1)
  1. ASPIRIN\DEXTROMETHORPHAN\DOXYLAMINE\PHENYLEPHRINE [Suspect]
     Active Substance: ASPIRIN\DEXTROMETHORPHAN\DOXYLAMINE\PHENYLEPHRINE
     Dosage: UNK

REACTIONS (2)
  - Swelling face [Not Recovered/Not Resolved]
  - Rash [Not Recovered/Not Resolved]
